FAERS Safety Report 20483283 (Version 4)
Quarter: 2024Q3

REPORT INFORMATION
  Report Type: Report from Study
  Country: JP (occurrence: JP)
  Receive Date: 20220217
  Receipt Date: 20240709
  Transmission Date: 20241017
  Serious: Yes (Other)
  Sender: ASTELLAS
  Company Number: JP-ASTELLAS-2022JP001537

PATIENT
  Age: 85 Year
  Sex: Female
  Weight: 60.9 kg

DRUGS (16)
  1. ENFORTUMAB VEDOTIN-EJFV [Suspect]
     Active Substance: ENFORTUMAB VEDOTIN-EJFV
     Indication: Metastatic carcinoma of the bladder
     Dosage: 1.25 MG/KG, ONCE WEEKLY ADMINISTRATION FOR 3 CONSECUTIVE WEEKS AND SUSPENSION FOR THE 4TH WEEK
     Route: 041
     Dates: start: 20220118, end: 20220125
  2. ENFORTUMAB VEDOTIN-EJFV [Suspect]
     Active Substance: ENFORTUMAB VEDOTIN-EJFV
     Dosage: 1.25 MG/KG, ONCE WEEKLY ADMINISTRATION FOR 3 CONSECUTIVE WEEKS AND SUSPENSION FOR THE 4TH WEEK
     Route: 041
     Dates: start: 20220215, end: 20220301
  3. ENFORTUMAB VEDOTIN-EJFV [Suspect]
     Active Substance: ENFORTUMAB VEDOTIN-EJFV
     Dosage: 0.875 MG/KG, ONCE WEEKLY ADMINISTRATION FOR 3 CONSECUTIVE WEEKS AND SUSPENSION FOR THE 4TH WEEK
     Route: 041
     Dates: start: 20220519, end: 20220728
  4. ENFORTUMAB VEDOTIN-EJFV [Suspect]
     Active Substance: ENFORTUMAB VEDOTIN-EJFV
     Dosage: 0.875 MG/KG, ONCE WEEKLY ADMINISTRATION FOR 3 CONSECUTIVE WEEKS AND SUSPENSION FOR THE 4TH WEEK
     Route: 041
     Dates: start: 20220922, end: 20221027
  5. ENFORTUMAB VEDOTIN-EJFV [Suspect]
     Active Substance: ENFORTUMAB VEDOTIN-EJFV
     Dosage: 0.875 MG/KG, ONCE WEEKLY ADMINISTRATION FOR 3 CONSECUTIVE WEEKS AND SUSPENSION FOR THE 4TH WEEK
     Route: 041
     Dates: start: 20221117, end: 20221124
  6. ENFORTUMAB VEDOTIN-EJFV [Suspect]
     Active Substance: ENFORTUMAB VEDOTIN-EJFV
     Dosage: 0.875 MG/KG, ONCE WEEKLY ADMINISTRATION FOR 3 CONSECUTIVE WEEKS AND SUSPENSION FOR THE 4TH WEEK
     Route: 041
     Dates: start: 20221215
  7. AVELUMAB [Concomitant]
     Active Substance: AVELUMAB
     Indication: Product used for unknown indication
     Dosage: UNK UNK, UNKNOWN FREQ.
     Route: 065
  8. METOCLOPRAMIDE [Concomitant]
     Active Substance: METOCLOPRAMIDE
     Indication: Nausea
     Route: 048
     Dates: start: 20220125
  9. OLOPATADINE [Concomitant]
     Active Substance: OLOPATADINE
     Indication: Rash
     Route: 048
     Dates: start: 20220201
  10. ASPIRIN [Concomitant]
     Active Substance: ASPIRIN
     Indication: Product used for unknown indication
     Route: 065
  11. TELMISARTAN [Concomitant]
     Active Substance: TELMISARTAN
     Indication: Product used for unknown indication
     Route: 065
  12. ISOSORBIDE MONONITRATE [Concomitant]
     Active Substance: ISOSORBIDE MONONITRATE
     Indication: Product used for unknown indication
     Route: 065
  13. ROSUVASTATIN [Concomitant]
     Active Substance: ROSUVASTATIN
     Indication: Product used for unknown indication
     Route: 065
  14. LANSOPRAZOLE [Concomitant]
     Active Substance: LANSOPRAZOLE
     Indication: Product used for unknown indication
     Route: 065
  15. MAGNESIUM OXIDE [Concomitant]
     Active Substance: MAGNESIUM OXIDE
     Indication: Product used for unknown indication
     Route: 065
  16. RUPAFIN [Concomitant]
     Active Substance: RUPATADINE FUMARATE
     Indication: Pruritus
     Dosage: UNK UNK, UNKNOWN FREQ.
     Route: 065

REACTIONS (12)
  - Hypothyroidism [Recovered/Resolved]
  - Neutrophil count decreased [Recovered/Resolved]
  - Interstitial lung disease [Recovered/Resolved]
  - Interstitial lung disease [Not Recovered/Not Resolved]
  - Malaise [Recovered/Resolved]
  - Vomiting [Recovered/Resolved]
  - Alopecia [Recovering/Resolving]
  - Pruritus [Recovered/Resolved]
  - Rash [Recovered/Resolved]
  - Rash [Recovered/Resolved]
  - Nausea [Recovered/Resolved]
  - Pruritus [Recovered/Resolved]

NARRATIVE: CASE EVENT DATE: 20220125
